FAERS Safety Report 21327155 (Version 7)
Quarter: 2022Q4

REPORT INFORMATION
  Report Type: Spontaneous
  Country: CA (occurrence: CA)
  Receive Date: 20220913
  Receipt Date: 20221101
  Transmission Date: 20230113
  Serious: Yes (Other)
  Sender: FDA-Public Use
  Company Number: CA-CELLTRION INC.-2022CA014560

PATIENT

DRUGS (4)
  1. INFLECTRA [Suspect]
     Active Substance: INFLIXIMAB-DYYB
     Indication: Crohn^s disease
     Dosage: 5 MG/KG, 0, 2, 6, WEEKS THEN EVERY 8 WEEKS (WEEK 0 COMPLETED AT HOSPITAL)
     Route: 042
     Dates: start: 20220806, end: 20220806
  2. INFLECTRA [Suspect]
     Active Substance: INFLIXIMAB-DYYB
     Dosage: 10 MG/KG, 2, 6, WEEKS THEN EVERY 8 WEEKS (WEEK 2 COMPLETED AT HOSPITAL)
     Route: 042
     Dates: start: 20220915, end: 20220915
  3. INFLECTRA [Suspect]
     Active Substance: INFLIXIMAB-DYYB
     Dosage: 5 MG/KG, WEEK 6, THEN EVERY 8 WEEKS
     Route: 042
     Dates: start: 20221013, end: 20221013
  4. PREDNISONE [Concomitant]
     Active Substance: PREDNISONE
     Dosage: 1 DF, DOSAGE NOT AVAILABLE
     Route: 065

REACTIONS (15)
  - Haematochezia [Recovering/Resolving]
  - Oxygen saturation decreased [Unknown]
  - Drug specific antibody present [Unknown]
  - Alopecia [Not Recovered/Not Resolved]
  - Abdominal pain [Recovering/Resolving]
  - Diarrhoea [Not Recovered/Not Resolved]
  - Nausea [Recovered/Resolved]
  - Tremor [Unknown]
  - Hypotension [Unknown]
  - Blood pressure fluctuation [Unknown]
  - Heart rate increased [Unknown]
  - Respiratory rate increased [Unknown]
  - Weight decreased [Unknown]
  - Inappropriate schedule of product administration [Unknown]
  - Infusion related reaction [Unknown]

NARRATIVE: CASE EVENT DATE: 20220101
